FAERS Safety Report 9644676 (Version 1)
Quarter: 2013Q4

REPORT INFORMATION
  Report Type: Spontaneous
  Country: US (occurrence: US)
  Receive Date: 20131025
  Receipt Date: 20131025
  Transmission Date: 20140711
  Serious: No
  Sender: FDA-Public Use
  Company Number: US-ROXANE LABORATORIES, INC.-2013-RO-01746RO

PATIENT
  Age: 73 Year
  Sex: Female

DRUGS (3)
  1. FLUTICASONE [Suspect]
     Indication: RHINITIS ALLERGIC
     Route: 045
  2. AMLODIPINE [Concomitant]
     Indication: HYPERTENSION
     Dosage: 5 MG
  3. FLECAINIDE [Concomitant]
     Indication: ATRIAL FIBRILLATION
     Dosage: 50 MG

REACTIONS (3)
  - Candida infection [Not Recovered/Not Resolved]
  - Throat irritation [Not Recovered/Not Resolved]
  - Tonsillar cyst [Not Recovered/Not Resolved]
